FAERS Safety Report 21793522 (Version 1)
Quarter: 2022Q4

REPORT INFORMATION
  Report Type: Spontaneous
  Country: IT (occurrence: IT)
  Receive Date: 20221229
  Receipt Date: 20221229
  Transmission Date: 20230112
  Serious: Yes (Other)
  Sender: FDA-Public Use
  Company Number: IT-ASTELLAS-2020US045777

PATIENT
  Age: 47 Year
  Sex: Male

DRUGS (17)
  1. LETROZOLE [Suspect]
     Active Substance: LETROZOLE
     Indication: Breast cancer stage III
     Dosage: 2.5 MILLIGRAM, ONCE A DAY
     Route: 065
     Dates: start: 201810
  2. LETROZOLE [Suspect]
     Active Substance: LETROZOLE
     Indication: Breast cancer male
  3. EVEROLIMUS [Suspect]
     Active Substance: EVEROLIMUS
     Indication: Breast cancer stage III
     Dosage: UNK
     Route: 065
     Dates: start: 20170926
  4. LEUPROLIDE ACETATE [Suspect]
     Active Substance: LEUPROLIDE ACETATE
     Indication: Breast cancer stage III
     Dosage: 3.75 MILLIGRAM (MONTHLY)
     Route: 065
     Dates: start: 201810
  5. LEUPROLIDE ACETATE [Suspect]
     Active Substance: LEUPROLIDE ACETATE
     Indication: Breast cancer male
  6. PALBOCICLIB [Suspect]
     Active Substance: PALBOCICLIB
     Indication: Breast cancer stage III
     Dosage: 100 MILLIGRAM
     Route: 065
     Dates: start: 201810, end: 201810
  7. PALBOCICLIB [Suspect]
     Active Substance: PALBOCICLIB
     Indication: Breast cancer male
     Dosage: 125 MILLIGRAM, ONCE A DAY
     Route: 065
     Dates: start: 201810
  8. CAPECITABINE [Concomitant]
     Active Substance: CAPECITABINE
     Indication: Breast cancer stage III
     Dosage: UNK
     Route: 065
     Dates: start: 20131001
  9. CARBOPLATIN [Concomitant]
     Active Substance: CARBOPLATIN
     Indication: Breast cancer stage III
     Dosage: UNK
     Route: 065
     Dates: start: 20180207
  10. ERIBULIN [Concomitant]
     Active Substance: ERIBULIN
     Indication: Breast cancer stage III
     Dosage: UNK
     Route: 065
     Dates: start: 20150601
  11. EXEMESTANE [Concomitant]
     Active Substance: EXEMESTANE
     Indication: Breast cancer stage III
     Dosage: UNK
     Route: 065
     Dates: start: 201007, end: 201310
  12. EXEMESTANE [Concomitant]
     Active Substance: EXEMESTANE
     Dosage: UNK
     Route: 065
     Dates: start: 20170926
  13. FULVESTRANT [Concomitant]
     Active Substance: FULVESTRANT
     Indication: Breast cancer stage III
     Dosage: UNK
     Route: 065
     Dates: start: 20161202
  14. GEMCITABINE [Concomitant]
     Active Substance: GEMCITABINE
     Indication: Breast cancer stage III
     Dosage: UNK
     Route: 065
     Dates: start: 20180207
  15. PACLITAXEL [Concomitant]
     Active Substance: PACLITAXEL
     Indication: Breast cancer stage III
     Dosage: UNK
     Route: 065
     Dates: start: 20150127
  16. TAMOXIFEN [Concomitant]
     Active Substance: TAMOXIFEN
     Indication: Breast cancer stage III
     Dosage: UNK
     Route: 065
     Dates: start: 20141001
  17. VINORELBINE [Concomitant]
     Active Substance: VINORELBINE TARTRATE
     Indication: Breast cancer stage III
     Dosage: UNK
     Route: 065
     Dates: start: 20131001

REACTIONS (7)
  - Asthenia [Unknown]
  - Pneumonitis [Unknown]
  - Stomatitis [Unknown]
  - Thrombocytopenia [Recovering/Resolving]
  - Neutropenia [Recovering/Resolving]
  - Drug ineffective [Unknown]
  - Product use in unapproved indication [Unknown]

NARRATIVE: CASE EVENT DATE: 20181001
